FAERS Safety Report 7995754-1 (Version None)
Quarter: 2011Q4

REPORT INFORMATION
  Report Type: 
  Country: None (occurrence: None)
  Receive Date: 20111220
  Receipt Date: 20111210
  Transmission Date: 20120403
  Serious: Yes (Hospitalization)
  Sender: FDA-Public Use
  Company Number: CA-JNJFOC-20111207444

PATIENT
  Sex: Male
  Weight: 75.75 kg

DRUGS (2)
  1. REMICADE [Suspect]
     Indication: COLITIS ULCERATIVE
     Dosage: 4 DOSES IN 2008
     Dates: start: 20080101, end: 20080101
  2. REMICADE [Suspect]
     Dates: start: 20111011, end: 20111201

REACTIONS (1)
  - COLECTOMY [None]
